FAERS Safety Report 24161488 (Version 1)
Quarter: 2024Q3

REPORT INFORMATION
  Report Type: Spontaneous
  Country: TW (occurrence: TW)
  Receive Date: 20240801
  Receipt Date: 20240801
  Transmission Date: 20241016
  Serious: Yes (Other)
  Sender: ALKEM
  Company Number: TW-ALKEM LABORATORIES LIMITED-TW-ALKEM-2024-00470

PATIENT
  Age: 55 Year
  Sex: Female

DRUGS (2)
  1. LAMOTRIGINE [Suspect]
     Active Substance: LAMOTRIGINE
     Indication: Bipolar I disorder
     Dosage: 100 MILLIGRAM, QD (PER DAY)
     Route: 065
  2. AMISULPRIDE [Concomitant]
     Active Substance: AMISULPRIDE
     Indication: Product used for unknown indication
     Dosage: UNK
     Route: 065

REACTIONS (1)
  - Pancytopenia [Not Recovered/Not Resolved]
